FAERS Safety Report 4589603-1 (Version None)
Quarter: 2005Q1

REPORT INFORMATION
  Report Type: 
  Country: None (occurrence: None)
  Receive Date: 20050223
  Receipt Date: 20041108
  Transmission Date: 20050727
  Serious: Yes (Death, Other)
  Sender: FDA-Public Use
  Company Number: US-MERCK-0411USA01417

PATIENT
  Age: 56 Year
  Sex: Male
  Weight: 82 kg

DRUGS (15)
  1. INVANZ [Suspect]
     Indication: DIABETIC FOOT INFECTION
     Route: 041
     Dates: start: 20030401, end: 20030401
  2. ASPIRIN [Concomitant]
     Route: 065
     Dates: start: 20020101
  3. SIMVASTATIN [Concomitant]
     Route: 065
     Dates: start: 20020101
  4. ROSIGLITAZONE MALEATE [Concomitant]
     Route: 065
     Dates: start: 20020101
  5. GLIPIZIDE [Concomitant]
     Route: 065
     Dates: start: 20020101
  6. METOPROLOL [Concomitant]
     Route: 065
     Dates: start: 20020101
  7. DOCUSATE SODIUM [Concomitant]
     Route: 065
     Dates: start: 20020101
  8. INSULIN [Concomitant]
     Route: 065
     Dates: start: 20020101
  9. EPOETIN [Concomitant]
     Route: 065
     Dates: start: 20020101
  10. PROPOFOL [Concomitant]
     Route: 065
     Dates: start: 20030401
  11. BUPIVACAINE HYDROCHLORIDE [Concomitant]
     Route: 041
     Dates: start: 20030401
  12. LEVOFLOXACIN [Concomitant]
     Indication: PYREXIA
     Route: 048
  13. LEVOFLOXACIN [Concomitant]
     Indication: SKIN ULCER
     Route: 048
  14. SODIUM POLYSTYRENE SULFONATE [Concomitant]
     Route: 048
     Dates: start: 20030401
  15. MORPHINE SULFATE [Concomitant]
     Indication: PAIN
     Route: 042
     Dates: start: 20020401, end: 20030401

REACTIONS (13)
  - APNOEA [None]
  - BLOOD GLUCOSE INCREASED [None]
  - CEREBRAL ISCHAEMIA [None]
  - CONVULSION [None]
  - CORONARY ARTERY ATHEROSCLEROSIS [None]
  - DEATH [None]
  - HYPERKALAEMIA [None]
  - HYPOCALCAEMIA [None]
  - LEUKOCYTOSIS [None]
  - MYOCARDIAL INFARCTION [None]
  - OXYGEN SATURATION DECREASED [None]
  - PULSE ABSENT [None]
  - VENTRICULAR ARRHYTHMIA [None]
